FAERS Safety Report 6518854-1 (Version None)
Quarter: 2009Q4

REPORT INFORMATION
  Report Type: 
  Country: None (occurrence: None)
  Receive Date: 20091228
  Receipt Date: 20091205
  Transmission Date: 20100525
  Serious: No
  Sender: FDA-Public Use
  Company Number: US-BAYER-200942433NA

PATIENT
  Age: 40 Year
  Sex: Female
  Weight: 100 kg

DRUGS (8)
  1. MAGNEVIST [Suspect]
     Indication: NUCLEAR MAGNETIC RESONANCE IMAGING
     Dosage: TOTAL DAILY DOSE: 20 ML  UNIT DOSE: 20 ML
     Route: 042
     Dates: start: 20091205, end: 20091205
  2. ZOFRAN [Concomitant]
  3. ASPIRIN [Concomitant]
  4. TYLENOL (CAPLET) [Concomitant]
  5. PERCOCET [Concomitant]
  6. THERAFLU [Concomitant]
  7. CEFTRIAXON [Concomitant]
  8. PREDNISONE [Concomitant]

REACTIONS (1)
  - PRURITUS GENERALISED [None]
